FAERS Safety Report 17488609 (Version 1)
Quarter: 2020Q1

REPORT INFORMATION
  Report Type: Spontaneous
  Country: JP (occurrence: JP)
  Receive Date: 20200303
  Receipt Date: 20200303
  Transmission Date: 20200409
  Serious: Yes (Death, Other)
  Sender: FDA-Public Use
  Company Number: JP-PFIZER INC-2020046510

PATIENT
  Age: 79 Year
  Sex: Male
  Weight: 48 kg

DRUGS (2)
  1. VFEND [Suspect]
     Active Substance: VORICONAZOLE
     Indication: BRONCHOPULMONARY ASPERGILLOSIS
     Dosage: 240 MG, 2X/DAY
     Route: 041
     Dates: start: 20200122, end: 20200122
  2. VFEND [Suspect]
     Active Substance: VORICONAZOLE
     Dosage: 160 MG, 2X/DAY
     Route: 041
     Dates: start: 20200123, end: 20200127

REACTIONS (4)
  - Alanine aminotransferase increased [Fatal]
  - Drug level increased [Unknown]
  - Aspartate aminotransferase increased [Fatal]
  - Hypoglycaemia [Fatal]

NARRATIVE: CASE EVENT DATE: 20200123
